FAERS Safety Report 9319312 (Version 1)
Quarter: 2013Q2

REPORT INFORMATION
  Report Type: Spontaneous
  Country: US (occurrence: None)
  Receive Date: 20130529
  Receipt Date: 20130529
  Transmission Date: 20140414
  Serious: Yes (Other)
  Sender: FDA-Public Use
  Company Number: None

PATIENT
  Age: 24 Year
  Sex: Male
  Weight: 59 kg

DRUGS (2)
  1. DEPAKOTE [Suspect]
     Indication: CONVULSION
     Dosage: 3 BID PO
     Dates: start: 200407
  2. DEPAKOTE [Suspect]
     Indication: ENCEPHALOPATHY
     Dosage: 3 BID PO
     Dates: start: 200407

REACTIONS (2)
  - Convulsion [None]
  - Product substitution issue [None]
